FAERS Safety Report 5811228-8 (Version None)
Quarter: 2008Q3

REPORT INFORMATION
  Report Type: 
  Country: None (occurrence: None)
  Receive Date: 20080716
  Receipt Date: 20080716
  Transmission Date: 20090109
  Serious: Yes (Life-Threatening, Hospitalization)
  Sender: FDA-Public Use
  Company Number: None

PATIENT
  Sex: Female
  Weight: 81.6475 kg

DRUGS (4)
  1. HEPARIN [Suspect]
     Indication: THROMBOSIS PROPHYLAXIS
     Dosage: 2 1/2 - 5 ML DAILY 1 - 2 X DAILY PIC LINE
     Dates: start: 20080219, end: 20080330
  2. HEPARIN [Suspect]
  3. HEPARIN [Suspect]
  4. CHEMO TREATMENTS [Concomitant]

REACTIONS (11)
  - ANGINA PECTORIS [None]
  - CATHETER RELATED COMPLICATION [None]
  - CHEST PAIN [None]
  - HYPOTHYROIDISM [None]
  - INFLAMMATION [None]
  - JUGULAR VEIN THROMBOSIS [None]
  - LOCAL SWELLING [None]
  - OEDEMA PERIPHERAL [None]
  - PLEURITIC PAIN [None]
  - SUBCLAVIAN VEIN THROMBOSIS [None]
  - VENA CAVA THROMBOSIS [None]
